FAERS Safety Report 4648586-6 (Version None)
Quarter: 2005Q2

REPORT INFORMATION
  Report Type: 
  Country: None (occurrence: None)
  Receive Date: 20050429
  Receipt Date: 20050322
  Transmission Date: 20051028
  Serious: Yes (Life-Threatening)
  Sender: FDA-Public Use
  Company Number: PHNU2005DE01438

PATIENT
  Age: 73 Year
  Sex: Female

DRUGS (1)
  1. EXELON [Suspect]
     Dosage: 6 MG, ONCE/SINGLE
     Route: 048
     Dates: start: 20050322, end: 20050322

REACTIONS (8)
  - ACCIDENTAL EXPOSURE [None]
  - ARRHYTHMIA [None]
  - ATRIAL FIBRILLATION [None]
  - BRADYCARDIA [None]
  - CARDIAC ARREST [None]
  - CIRCULATORY COLLAPSE [None]
  - CONVULSION [None]
  - SICK SINUS SYNDROME [None]
